FAERS Safety Report 5591891-X (Version None)
Quarter: 2008Q1

REPORT INFORMATION
  Report Type: 
  Country: None (occurrence: None)
  Receive Date: 20080115
  Receipt Date: 20080107
  Transmission Date: 20080703
  Serious: Yes (Other)
  Sender: FDA-Public Use
  Company Number: GB-ASTRAZENECA-2008GB00035

PATIENT
  Age: 64 Year
  Sex: Female
  Weight: 95 kg

DRUGS (8)
  1. ARIMIDEX [Suspect]
     Indication: BREAST CANCER
     Route: 048
     Dates: start: 20070326
  2. ASPIRIN [Concomitant]
  3. ATORVASTATIN [Concomitant]
     Route: 048
     Dates: start: 20040101
  4. CALCIUM GLUCONATE [Concomitant]
  5. FLECAINIDE ACETATE [Concomitant]
     Route: 048
  6. OMEPRAZOLE [Concomitant]
     Route: 048
     Dates: start: 20060101
  7. RAMIPRIL [Concomitant]
     Route: 048
     Dates: start: 20050101
  8. VITAMIN D [Concomitant]

REACTIONS (1)
  - AMNESIA [None]
